FAERS Safety Report 4455370-5 (Version None)
Quarter: 2004Q3

REPORT INFORMATION
  Report Type: 
  Country: None (occurrence: None)
  Receive Date: 20040825
  Receipt Date: 20040608
  Transmission Date: 20050211
  Serious: Yes (Hospitalization)
  Sender: FDA-Public Use
  Company Number: 207053

PATIENT
  Age: 36 Year
  Sex: Male
  Weight: 113.4 kg

DRUGS (2)
  1. RAPTIVA [Suspect]
     Indication: PSORIASIS
     Dosage: SUBCUTANEOUS
     Route: 058
     Dates: start: 20040604
  2. GLYBURIDE [Concomitant]

REACTIONS (1)
  - MENINGITIS ASEPTIC [None]
